FAERS Safety Report 5021327-9 (Version None)
Quarter: 2006Q2

REPORT INFORMATION
  Report Type: 
  Country: None (occurrence: None)
  Receive Date: 20060608
  Receipt Date: 20050714
  Transmission Date: 20061013
  Serious: No
  Sender: FDA-Public Use
  Company Number: US-BRISTOL-MYERS SQUIBB COMPANY-13038179

PATIENT
  Age: 81 Year
  Sex: Female

DRUGS (1)
  1. SINEMET [Suspect]

REACTIONS (9)
  - ANOREXIA [None]
  - CHEST PAIN [None]
  - DISORIENTATION [None]
  - DYSURIA [None]
  - FALL [None]
  - HALLUCINATION [None]
  - PSYCHOTIC DISORDER [None]
  - SOMNOLENCE [None]
  - VISUAL DISTURBANCE [None]
